FAERS Safety Report 22022478 (Version 2)
Quarter: 2023Q2

REPORT INFORMATION
  Report Type: Spontaneous
  Country: US (occurrence: US)
  Receive Date: 20230222
  Receipt Date: 20230508
  Transmission Date: 20230721
  Serious: Yes (Other)
  Sender: FDA-Public Use
  Company Number: US-BAYER-2023A020226

PATIENT
  Age: 15 Year
  Sex: Male

DRUGS (2)
  1. KOVALTRY [Suspect]
     Active Substance: ANTIHEMOPHILIC FACTOR, HUMAN RECOMBINANT
     Dosage: 1500 IU, PRN
  2. KOVALTRY [Suspect]
     Active Substance: ANTIHEMOPHILIC FACTOR, HUMAN RECOMBINANT
     Dosage: 1 DF, ONCE, TO TREAT KNEE HAEMARTHROSIS
     Route: 042
     Dates: start: 2023, end: 2023

REACTIONS (2)
  - Haemarthrosis [Recovered/Resolved]
  - Illness [None]

NARRATIVE: CASE EVENT DATE: 20230202
